FAERS Safety Report 6745527-2 (Version None)
Quarter: 2010Q2

REPORT INFORMATION
  Report Type: 
  Country: None (occurrence: None)
  Receive Date: 20100528
  Receipt Date: 20100521
  Transmission Date: 20101027
  Serious: Yes (Other)
  Sender: FDA-Public Use
  Company Number: US-JNJFOC-20100108249

PATIENT
  Sex: Female
  Weight: 77.11 kg

DRUGS (8)
  1. DURAGESIC-100 [Suspect]
     Indication: BACK PAIN
     Route: 062
  2. DURAGESIC-100 [Suspect]
     Route: 062
  3. DURAGESIC-100 [Suspect]
     Indication: PAIN IN EXTREMITY
     Route: 062
  4. DURAGESIC-100 [Suspect]
     Route: 062
  5. DURAGESIC-100 [Suspect]
     Indication: RADICULAR PAIN
     Route: 062
  6. SEROQUEL [Suspect]
     Indication: PSYCHOTIC DISORDER
     Route: 048
  7. SEROQUEL [Suspect]
     Indication: POSTPARTUM DEPRESSION
     Route: 048
  8. UNKNOWN MEDICATION [Concomitant]
     Route: 065

REACTIONS (9)
  - ANXIETY [None]
  - APPLICATION SITE BURN [None]
  - DRUG EXPOSURE DURING PREGNANCY [None]
  - PANIC DISORDER [None]
  - POSTPARTUM DEPRESSION [None]
  - PSYCHOTIC DISORDER [None]
  - RASH PRURITIC [None]
  - RHABDOMYOLYSIS [None]
  - WRONG TECHNIQUE IN DRUG USAGE PROCESS [None]
